FAERS Safety Report 9631223 (Version 1)
Quarter: 2013Q4

REPORT INFORMATION
  Report Type: Spontaneous
  Country: ES (occurrence: None)
  Receive Date: 20131016
  Receipt Date: 20131016
  Transmission Date: 20140711
  Serious: Yes (Other)
  Sender: FDA-Public Use
  Company Number: FK201304544

PATIENT
  Age: 82 Year
  Sex: Female

DRUGS (1)
  1. TRANEXAMIC ACID [Suspect]
     Indication: PROCEDURAL HAEMORRHAGE
     Dosage: 1 IN 1 ONCE, UNKNOWN

REACTIONS (1)
  - Convulsion [None]
